FAERS Safety Report 14510812 (Version 11)
Quarter: 2018Q2

REPORT INFORMATION
  Report Type: Report from Study
  Country: JP (occurrence: JP)
  Receive Date: 20180209
  Receipt Date: 20180521
  Transmission Date: 20180711
  Serious: Yes (Hospitalization)
  Sender: FDA-Public Use
  Company Number: JP-PFIZER INC-2018053339

PATIENT
  Age: 71 Year
  Sex: Male
  Weight: 84.7 kg

DRUGS (9)
  1. AIMIX [Concomitant]
     Active Substance: AMLODIPINE BESYLATE\IRBESARTAN
     Indication: HYPERTENSION
     Dosage: 1 DF, UNK
     Dates: start: 20171221, end: 20180201
  2. ULCERLMIN [Concomitant]
     Active Substance: SUCRALFATE
     Dosage: 1 G, UNK
     Dates: start: 20180111, end: 20180201
  3. AXITINIB [Suspect]
     Active Substance: AXITINIB
     Dosage: 2 MG, CYCLIC 2X/DAY
     Route: 048
     Dates: start: 20180201, end: 20180201
  4. PEMBROLIZUMAB. [Suspect]
     Active Substance: PEMBROLIZUMAB
     Dosage: 200 MG, EVERY 3 WEEKS
     Route: 042
     Dates: start: 20180118, end: 20180118
  5. AXITINIB [Suspect]
     Active Substance: AXITINIB
     Dosage: 3 MG, CYCLIC 2X/DAY
     Route: 048
     Dates: start: 20171227, end: 20180111
  6. AXITINIB [Suspect]
     Active Substance: AXITINIB
     Dosage: 2 MG, CYCLIC 2X/DAY
     Route: 048
     Dates: start: 20180118, end: 20180131
  7. PEMBROLIZUMAB. [Suspect]
     Active Substance: PEMBROLIZUMAB
     Indication: RENAL CELL CARCINOMA
     Dosage: 200 MG, (VOLUME OF INFUSION 108 ML), EVERY 3 WEEKS
     Route: 042
     Dates: start: 20171206, end: 20171227
  8. CANDESARTAN. [Concomitant]
     Active Substance: CANDESARTAN
     Dosage: 8 MG, UNK
     Dates: start: 20171228, end: 20180201
  9. AXITINIB [Suspect]
     Active Substance: AXITINIB
     Indication: RENAL CELL CARCINOMA
     Dosage: 5 MG, CYCLIC 2X/DAY
     Route: 048
     Dates: start: 20171206, end: 20171214

REACTIONS (1)
  - Hepatic function abnormal [Recovering/Resolving]

NARRATIVE: CASE EVENT DATE: 20180201
